FAERS Safety Report 9244436 (Version 1)
Quarter: 2013Q2

REPORT INFORMATION
  Report Type: Spontaneous
  Country: US (occurrence: US)
  Receive Date: 20130422
  Receipt Date: 20130422
  Transmission Date: 20140414
  Serious: No
  Sender: FDA-Public Use
  Company Number: PHEH2013US008465

PATIENT
  Sex: Female

DRUGS (7)
  1. TASIGNA [Suspect]
     Dosage: 400 MG, BID (2 X 200 MG X TWICE PER DAY)
  2. TASIGNA [Suspect]
     Dosage: 150 MG, QID
  3. QUESTRAN [Concomitant]
     Indication: DIARRHOEA
     Dosage: 1 PACKET OF POWDER PER DAY
  4. PROZAC [Concomitant]
  5. XANAX [Concomitant]
  6. LORTAB [Concomitant]
  7. ADVIL//IBUPROFEN [Concomitant]

REACTIONS (2)
  - Headache [Unknown]
  - Blood bilirubin increased [Unknown]
